FAERS Safety Report 11424479 (Version 1)
Quarter: 2015Q3

REPORT INFORMATION
  Report Type: Spontaneous
  Country: US (occurrence: US)
  Receive Date: 20150827
  Receipt Date: 20150827
  Transmission Date: 20151125
  Serious: No
  Sender: FDA-Public Use
  Company Number: US-SA-2015SA053744

PATIENT
  Sex: Female

DRUGS (6)
  1. ADVAIR HFA [Concomitant]
     Active Substance: FLUTICASONE PROPIONATE\SALMETEROL XINAFOATE
     Indication: ASTHMA
  2. SPIRIVA [Concomitant]
     Active Substance: TIOTROPIUM BROMIDE MONOHYDRATE
     Indication: ASTHMA
  3. MULTAQ [Suspect]
     Active Substance: DRONEDARONE
     Indication: ATRIAL FIBRILLATION
     Route: 065
  4. XOPENEX [Concomitant]
     Active Substance: LEVALBUTEROL HYDROCHLORIDE
     Indication: ASTHMA
     Dosage: NEBULIZER FORM
     Route: 055
  5. LOVASTATIN. [Concomitant]
     Active Substance: LOVASTATIN
  6. DIGOXIN. [Concomitant]
     Active Substance: DIGOXIN
     Dosage: 2 TABLETS IN THE AM AND PM MWF AND 1 TABLET THE OTHER 4 DAYS

REACTIONS (3)
  - Blood pressure increased [Unknown]
  - Cough [Unknown]
  - Heart rate increased [Unknown]
